FAERS Safety Report 20177229 (Version 2)
Quarter: 2022Q1

REPORT INFORMATION
  Report Type: Spontaneous
  Country: BR (occurrence: BR)
  Receive Date: 20211213
  Receipt Date: 20220112
  Transmission Date: 20220423
  Serious: Yes (Other)
  Sender: FDA-Public Use
  Company Number: BR-ORGANON-O2110BRA000828

PATIENT
  Age: 28 Year
  Sex: Female
  Weight: 62 kg

DRUGS (3)
  1. NUVARING [Suspect]
     Active Substance: ETHINYL ESTRADIOL\ETONOGESTREL
     Indication: Polycystic ovaries
     Dosage: 1 RING, CYCLICAL
     Route: 067
     Dates: start: 20210917, end: 20211008
  2. NUVARING [Suspect]
     Active Substance: ETHINYL ESTRADIOL\ETONOGESTREL
     Indication: Contraception
  3. PURAN [Concomitant]
     Active Substance: LEVOTHYROXINE SODIUM
     Indication: Thyroid disorder
     Dosage: 1 TABLET - 100MCG - DAILY
     Route: 048

REACTIONS (8)
  - Vulvovaginal injury [Recovered/Resolved]
  - Vulvovaginal erythema [Not Recovered/Not Resolved]
  - Muscle spasms [Recovered/Resolved]
  - Vulvovaginal burning sensation [Not Recovered/Not Resolved]
  - Vulvovaginal pruritus [Not Recovered/Not Resolved]
  - Medical device site discomfort [Unknown]
  - Device breakage [Unknown]
  - Product use in unapproved indication [Unknown]

NARRATIVE: CASE EVENT DATE: 20210101
